FAERS Safety Report 5492638-8 (Version None)
Quarter: 2007Q4

REPORT INFORMATION
  Report Type: 
  Country: None (occurrence: None)
  Receive Date: 20071022
  Receipt Date: 20071011
  Transmission Date: 20080405
  Serious: Yes (Hospitalization)
  Sender: FDA-Public Use
  Company Number: FR-PFIZER INC-2005163762

PATIENT
  Sex: Male
  Weight: 65 kg

DRUGS (2)
  1. SU-011,248 [Suspect]
     Indication: RENAL CELL CARCINOMA STAGE UNSPECIFIED
     Route: 048
     Dates: start: 20051028, end: 20051110
  2. SU-011,248 [Suspect]
     Route: 048

REACTIONS (3)
  - CHILLS [None]
  - NEUTROPENIA [None]
  - PYREXIA [None]
